FAERS Safety Report 5300255-5 (Version None)
Quarter: 2007Q2

REPORT INFORMATION
  Report Type: 
  Country: None (occurrence: None)
  Receive Date: 20070411
  Receipt Date: 20070403
  Transmission Date: 20071010
  Serious: Yes (Hospitalization)
  Sender: FDA-Public Use
  Company Number: CLOF-10457

PATIENT
  Age: 40 Year
  Sex: Male

DRUGS (21)
  1. CLOFARABINE [Suspect]
     Indication: ACUTE MYELOID LEUKAEMIA
     Dates: start: 20061221, end: 20061222
  2. CLOFARABINE [Suspect]
     Indication: MYELODYSPLASTIC SYNDROME
     Dates: start: 20061221, end: 20061222
  3. CLOFARABINE [Suspect]
     Indication: ACUTE MYELOID LEUKAEMIA
     Dates: start: 20061228, end: 20061229
  4. CLOFARABINE [Suspect]
     Indication: MYELODYSPLASTIC SYNDROME
     Dates: start: 20061228, end: 20061229
  5. CLOFARABINE [Suspect]
     Indication: ACUTE MYELOID LEUKAEMIA
     Dates: start: 20070208, end: 20070209
  6. CLOFARABINE [Suspect]
     Indication: MYELODYSPLASTIC SYNDROME
     Dates: start: 20070208, end: 20070209
  7. CLOFARABINE [Suspect]
     Indication: ACUTE MYELOID LEUKAEMIA
     Dates: start: 20070215, end: 20070216
  8. CLOFARABINE [Suspect]
     Indication: MYELODYSPLASTIC SYNDROME
     Dates: start: 20070215, end: 20070216
  9. ACETAMINOPHEN [Concomitant]
  10. ALLOPURINOL [Concomitant]
  11. HYDROCORTISONE [Concomitant]
  12. VORICONAZOLE [Concomitant]
  13. CEFEPIME [Concomitant]
  14. VANCOMYCIN [Concomitant]
  15. VALTREX [Concomitant]
  16. AMBISOME [Concomitant]
  17. ZOFRAN [Concomitant]
  18. ATIVAN [Concomitant]
  19. LEXAPRO [Concomitant]
  20. DAPSONE [Concomitant]
  21. CIPRO [Concomitant]

REACTIONS (13)
  - ARTHRALGIA [None]
  - BACTERIAL INFECTION [None]
  - BUNDLE BRANCH BLOCK RIGHT [None]
  - CHILLS [None]
  - ELECTROCARDIOGRAM Q WAVES [None]
  - FATIGUE [None]
  - FEBRILE NEUTROPENIA [None]
  - INFLUENZA LIKE ILLNESS [None]
  - LETHARGY [None]
  - PERICARDIAL EFFUSION [None]
  - PNEUMONIA FUNGAL [None]
  - SINUSITIS [None]
  - TACHYCARDIA [None]
